FAERS Safety Report 17583131 (Version 2)
Quarter: 2022Q1

REPORT INFORMATION
  Report Type: Spontaneous
  Country: PT (occurrence: PT)
  Receive Date: 20200325
  Receipt Date: 20220124
  Transmission Date: 20220424
  Serious: Yes (Life-Threatening, Hospitalization, Disabling, Other)
  Sender: FDA-Public Use
  Company Number: PT-ACTAVIS-2014-24920

PATIENT
  Age: 55 Year
  Sex: Female
  Weight: 60 kg

DRUGS (11)
  1. CEFUROXIME [Suspect]
     Active Substance: CEFUROXIME
     Indication: Culture urine positive
     Dosage: 1500 MILLIGRAM, ONCE A DAY
     Route: 048
     Dates: start: 20141024
  2. CEFUROXIME [Suspect]
     Active Substance: CEFUROXIME
     Indication: Klebsiella infection
     Dosage: 750 MG TWICE DAILY, FOR TWO DAYS, OR 1500 MG, 12H/12H, FOR THREE DAYS (INCONSISTENT INFORMATION)
     Route: 048
  3. CEFUROXIME [Suspect]
     Active Substance: CEFUROXIME
     Indication: Urinary tract infection bacterial
  4. ULIPRISTAL [Suspect]
     Active Substance: ULIPRISTAL
     Indication: Uterine enlargement
     Dosage: 1 DOSAGE FORM, ONCE A DAY
     Route: 048
     Dates: start: 20140711, end: 20141027
  5. ULIPRISTAL [Suspect]
     Active Substance: ULIPRISTAL
     Indication: Uterine leiomyoma
  6. ULIPRISTAL [Suspect]
     Active Substance: ULIPRISTAL
     Indication: Menometrorrhagia
  7. ULIPRISTAL ACETATE [Suspect]
     Active Substance: ULIPRISTAL ACETATE
     Indication: Uterine enlargement
     Dosage: 5 MILLIGRAM, ONCE A DAY
     Route: 065
     Dates: start: 20140711, end: 20141027
  8. ULIPRISTAL ACETATE [Suspect]
     Active Substance: ULIPRISTAL ACETATE
     Indication: Uterine leiomyoma
  9. ULIPRISTAL ACETATE [Suspect]
     Active Substance: ULIPRISTAL ACETATE
     Indication: Menometrorrhagia
  10. ACETYLCYSTEINE [Concomitant]
     Active Substance: ACETYLCYSTEINE
     Indication: Product used for unknown indication
     Dosage: UNK
     Route: 065
  11. PREDNISOLONE [Concomitant]
     Active Substance: PREDNISOLONE
     Indication: Product used for unknown indication
     Dosage: UNK
     Route: 065

REACTIONS (6)
  - Hepatic failure [Recovered/Resolved with Sequelae]
  - Klebsiella infection [Recovered/Resolved]
  - Insomnia [Recovered/Resolved]
  - Intentional product use issue [Recovered/Resolved]
  - Urinary tract infection bacterial [Recovered/Resolved]
  - Dizziness [Unknown]

NARRATIVE: CASE EVENT DATE: 20140701
